FAERS Safety Report 4863143-4 (Version None)
Quarter: 2005Q4

REPORT INFORMATION
  Report Type: 
  Country: None (occurrence: None)
  Receive Date: 20051213
  Receipt Date: 20051128
  Transmission Date: 20060501
  Serious: Yes (Hospitalization)
  Sender: FDA-Public Use
  Company Number: 2005BH003155

PATIENT
  Age: 28 Year
  Sex: Female

DRUGS (1)
  1. POLYGAM S/D [Suspect]
     Indication: TOXIC SHOCK SYNDROME STREPTOCOCCAL
     Dosage: 0.4 GM/KG; EVERY DAY; IV
     Route: 042

REACTIONS (13)
  - ABDOMINAL DISTENSION [None]
  - ACUTE RESPIRATORY DISTRESS SYNDROME [None]
  - ANAEMIA [None]
  - ARTERIAL DISORDER [None]
  - COAGULOPATHY [None]
  - LEUKOCYTOSIS [None]
  - LUNG INFILTRATION [None]
  - PLATELET COUNT INCREASED [None]
  - PULMONARY ARTERIAL PRESSURE INCREASED [None]
  - PULMONARY EMBOLISM [None]
  - PYREXIA [None]
  - SINUS TACHYCARDIA [None]
  - THROMBOSIS [None]
